FAERS Safety Report 25762225 (Version 1)
Quarter: 2025Q3

REPORT INFORMATION
  Report Type: Report from Study
  Country: US (occurrence: US)
  Receive Date: 20250904
  Receipt Date: 20250904
  Transmission Date: 20251020
  Serious: Yes (Other)
  Sender: ABBVIE
  Company Number: US-ABBVIE-6433876

PATIENT
  Age: 32 Year
  Sex: Female

DRUGS (1)
  1. RINVOQ [Suspect]
     Active Substance: UPADACITINIB
     Indication: Psoriatic arthropathy
     Dosage: 1 TABLET, FORM STRENGTH: 15MG?TWO-WEEK PERIOD WHEN SHE DID NOT TAKE RINVOQ DUE TO UNDERGOING SURGERY
     Route: 048
     Dates: start: 20250101

REACTIONS (3)
  - Surgery [Unknown]
  - Pain [Not Recovered/Not Resolved]
  - Drug ineffective [Not Recovered/Not Resolved]

NARRATIVE: CASE EVENT DATE: 20250101
